APPROVED DRUG PRODUCT: ISOETHARINE HYDROCHLORIDE
Active Ingredient: ISOETHARINE HYDROCHLORIDE
Strength: 0.2%
Dosage Form/Route: SOLUTION;INHALATION
Application: A088471 | Product #001
Applicant: ASTRAZENECA LP
Approved: Mar 14, 1984 | RLD: Yes | RS: No | Type: DISCN